FAERS Safety Report 6292279-9 (Version None)
Quarter: 2009Q3

REPORT INFORMATION
  Report Type: 
  Country: None (occurrence: None)
  Receive Date: 20090731
  Receipt Date: 20080430
  Transmission Date: 20100115
  Serious: Yes (Hospitalization, Other)
  Sender: FDA-Public Use
  Company Number: US-ASTRAZENECA-2007UW16998

PATIENT
  Age: 11426 Day
  Sex: Female
  Weight: 112.9 kg

DRUGS (14)
  1. SEROQUEL [Suspect]
     Indication: BIPOLAR DISORDER
     Dosage: 200-450 MG DAILY
     Route: 048
     Dates: start: 20021114
  2. SEROQUEL [Suspect]
     Route: 048
     Dates: start: 20030101, end: 20060301
  3. GEODON [Concomitant]
  4. THORAZINE [Concomitant]
  5. LITHIUM [Concomitant]
     Dates: start: 20070201
  6. TRAZODONE HCL [Concomitant]
  7. XANAX [Concomitant]
  8. METFORMIN [Concomitant]
     Route: 048
  9. LANTUS [Concomitant]
     Dosage: 15-25 UNITS EVERY DAY
  10. LAMICTAL [Concomitant]
  11. OXYCODONE HCL AND ACETAMINOPHEN [Concomitant]
     Dosage: OXYCODONE 5-7.5 MG, PARACETAMOL 325-500 MG, EVERY DAY
     Route: 065
  12. NORVASC [Concomitant]
  13. EFFEXOR [Concomitant]
  14. ESTRACE [Concomitant]

REACTIONS (8)
  - DIABETES MELLITUS [None]
  - DIABETES MELLITUS INADEQUATE CONTROL [None]
  - DIABETIC EYE DISEASE [None]
  - HYSTERECTOMY [None]
  - MEMORY IMPAIRMENT [None]
  - OBESITY [None]
  - TYPE 1 DIABETES MELLITUS [None]
  - TYPE 2 DIABETES MELLITUS [None]
